FAERS Safety Report 4886902-0 (Version None)
Quarter: 2006Q1

REPORT INFORMATION
  Report Type: 
  Country: None (occurrence: None)
  Receive Date: 20060119
  Receipt Date: 20051018
  Transmission Date: 20060701
  Serious: Yes (Death, Life-Threatening, Hospitalization)
  Sender: FDA-Public Use
  Company Number: GBWYE536129MAR05

PATIENT
  Age: 57 Year
  Sex: Male

DRUGS (8)
  1. EFFEXOR XR [Suspect]
     Indication: DEPRESSION
     Dosage: SEE IMAGE
     Route: 048
     Dates: end: 20050121
  2. EFFEXOR XR [Suspect]
     Indication: DEPRESSION
     Dosage: SEE IMAGE
     Route: 048
     Dates: start: 20050122, end: 20050128
  3. EFFEXOR XR [Suspect]
     Indication: DEPRESSION
     Dosage: SEE IMAGE
     Route: 048
     Dates: start: 20050129, end: 20050205
  4. SERTRALINE HCL [Suspect]
     Indication: DEPRESSION
     Dosage: SEE IMAGE
     Route: 048
     Dates: start: 20050205, end: 20050211
  5. SERTRALINE HCL [Suspect]
     Indication: DEPRESSION
     Dosage: SEE IMAGE
     Route: 048
     Dates: start: 20050212
  6. ZOPICLONE (ZOPICLONE) [Concomitant]
  7. OLANZAPINE [Concomitant]
  8. DIAZEPAM [Concomitant]

REACTIONS (4)
  - COMPLETED SUICIDE [None]
  - DRUG WITHDRAWAL SYNDROME [None]
  - MULTIPLE DRUG OVERDOSE [None]
  - SUICIDAL IDEATION [None]
